FAERS Safety Report 7679835-8 (Version None)
Quarter: 2011Q3

REPORT INFORMATION
  Report Type: 
  Country: None (occurrence: None)
  Receive Date: 20110812
  Receipt Date: 20110802
  Transmission Date: 20111222
  Serious: Yes (Hospitalization)
  Sender: FDA-Public Use
  Company Number: FR-JNJFOC-20110801674

PATIENT
  Age: 40 Year
  Sex: Male

DRUGS (1)
  1. REMICADE [Suspect]
     Indication: ILL-DEFINED DISORDER
     Route: 042
     Dates: start: 20090101, end: 20110119

REACTIONS (8)
  - FEELING COLD [None]
  - INFUSION RELATED REACTION [None]
  - PERIPHERAL COLDNESS [None]
  - TREMOR [None]
  - CHILLS [None]
  - PALLOR [None]
  - MALAISE [None]
  - FEELING ABNORMAL [None]
